FAERS Safety Report 9106426 (Version 2)
Quarter: 2013Q1

REPORT INFORMATION
  Report Type: Report from Study
  Country: SI (occurrence: SI)
  Receive Date: 20130221
  Receipt Date: 20130226
  Transmission Date: 20140127
  Serious: Yes (Death, Hospitalization)
  Sender: FDA-Public Use
  Company Number: SI-PFIZER INC-2013051157

PATIENT
  Age: 60 Year
  Sex: Male

DRUGS (9)
  1. CELEBREX [Suspect]
     Indication: SMALL CELL LUNG CANCER
     Dosage: 400 MG, 2X/DAY
     Route: 048
     Dates: start: 20130107, end: 20130112
  2. CISPLATIN [Suspect]
     Indication: SMALL CELL LUNG CANCER
     Dosage: 160 MG, UNK
     Route: 042
     Dates: start: 20130108, end: 20130108
  3. EPOSIN [Suspect]
     Indication: SMALL CELL LUNG CANCER
     Dosage: 200MG+200MG+200MG, UNK
     Route: 042
     Dates: start: 20130107, end: 20130109
  4. MEDROL [Concomitant]
     Dosage: 12MG ORAL +8 MG, UNK
     Route: 042
     Dates: start: 20130112
  5. MEDROL [Concomitant]
     Dosage: 8 MG, UNK
     Route: 042
     Dates: start: 20130112
  6. MEDROL [Concomitant]
     Dosage: 12MG+8MG, UNK
     Route: 058
  7. XANAX [Concomitant]
     Dosage: 0.25 MG, EVENING
     Route: 065
     Dates: start: 20130112
  8. NEXIUM [Concomitant]
     Dosage: 40 MG, MORNING
     Route: 065
     Dates: start: 20130112
  9. FRAXIPARINE [Concomitant]
     Dosage: 0.4 ML, 1X/DAY
     Route: 058
     Dates: start: 20130112

REACTIONS (7)
  - Cardiopulmonary failure [Fatal]
  - Pneumonia [Fatal]
  - Febrile neutropenia [Unknown]
  - Thrombocytopenia [Unknown]
  - Legionella infection [Unknown]
  - Cough [Unknown]
  - Pyrexia [Unknown]
